FAERS Safety Report 24639736 (Version 1)
Quarter: 2024Q4

REPORT INFORMATION
  Report Type: Spontaneous
  Country: IT (occurrence: IT)
  Receive Date: 20241119
  Receipt Date: 20241119
  Transmission Date: 20250115
  Serious: Yes (Other)
  Sender: AMGEN
  Company Number: IT-AMGEN-ITASP2024225372

PATIENT

DRUGS (2)
  1. ECULIZUMAB [Suspect]
     Active Substance: ECULIZUMAB
     Indication: Myasthenia gravis
     Dosage: UNK
     Route: 065
  2. PREDNISONE [Concomitant]
     Active Substance: PREDNISONE
     Indication: Myasthenia gravis
     Dosage: DAILY DOSE
     Route: 065

REACTIONS (6)
  - Myasthenia gravis [Unknown]
  - Drug effective for unapproved indication [Unknown]
  - Adverse event [Unknown]
  - Infection [Unknown]
  - Surgery [Unknown]
  - Off label use [Unknown]
